FAERS Safety Report 6139536-4 (Version None)
Quarter: 2009Q2

REPORT INFORMATION
  Report Type: 
  Country: None (occurrence: None)
  Receive Date: 20090401
  Receipt Date: 20090312
  Transmission Date: 20091009
  Serious: Yes (Life-Threatening, Hospitalization, Other)
  Sender: FDA-Public Use
  Company Number: JP-PFIZER INC-2009186072

PATIENT

DRUGS (17)
  1. LIPITOR [Suspect]
     Dosage: 10 MG, 1X/DAY
     Route: 048
     Dates: end: 20081202
  2. LIPITOR [Suspect]
     Dosage: 5 MG, 1X/DAY
     Route: 048
     Dates: start: 20080403, end: 20081202
  3. OLMESARTAN MEDOXOMIL [Suspect]
     Indication: ESSENTIAL HYPERTENSION
     Dosage: 20 MG, 1X/DAY
     Route: 048
     Dates: start: 20060406, end: 20081202
  4. OLMESARTAN MEDOXOMIL [Suspect]
     Dosage: 40 MG
     Route: 048
     Dates: end: 20081202
  5. PANALDINE [Suspect]
     Dosage: 200 MG
     Route: 048
     Dates: end: 20081202
  6. DALACIN [Suspect]
     Dosage: UNK
     Route: 048
     Dates: end: 20081030
  7. KEFRAL [Suspect]
     Dosage: UNK
     Route: 048
     Dates: end: 20081030
  8. MINOCYCLINE HCL [Suspect]
     Dosage: 200 MG
     Route: 048
     Dates: start: 20080901, end: 20080913
  9. BLOPRESS [Concomitant]
     Dosage: 8 MG, 1X/DAY
     Route: 048
     Dates: end: 20060405
  10. BASEN [Concomitant]
     Dosage: 0.6 MG
     Route: 048
     Dates: end: 20080403
  11. BASEN [Concomitant]
     Dosage: 0.9 MG
     Route: 048
     Dates: start: 20080403
  12. DAONIL [Concomitant]
     Dosage: 1.25 MG, 1X/DAY
     Route: 048
     Dates: end: 20081009
  13. ACTOS [Concomitant]
     Dosage: 30 MG, 1X/DAY
     Route: 048
  14. ASPIRIN [Concomitant]
     Dosage: 100 MG, 1X/DAY
     Route: 048
     Dates: end: 20081202
  15. AMLODIN [Concomitant]
     Dosage: 2.5 MG, 1X/DAY
     Route: 048
     Dates: start: 20070426
  16. NATRIX [Concomitant]
     Dosage: 1 MG, 1X/DAY
     Route: 048
     Dates: start: 20071004
  17. GLIMICRON [Concomitant]
     Dosage: 40 MG, 1X/DAY
     Route: 048
     Dates: start: 20081009

REACTIONS (5)
  - ARTERIOVENOUS GRAFT SITE INFECTION [None]
  - BACTERAEMIA [None]
  - DRUG ERUPTION [None]
  - LUNG NEOPLASM MALIGNANT [None]
  - SEPSIS [None]
